FAERS Safety Report 17655554 (Version 2)
Quarter: 2020Q2

REPORT INFORMATION
  Report Type: Spontaneous
  Country: US (occurrence: US)
  Receive Date: 20200410
  Receipt Date: 20200413
  Transmission Date: 20200713
  Serious: No
  Sender: FDA-Public Use
  Company Number: US-PFIZER INC-2020148262

PATIENT
  Age: 40 Year
  Sex: Male
  Weight: 74.83 kg

DRUGS (1)
  1. VIAGRA [Suspect]
     Active Substance: SILDENAFIL CITRATE
     Indication: ERECTILE DYSFUNCTION
     Dosage: 50 MG, AS NEEDED (USUALLY ABOUT 1 TABLET EVERY 3 DAYS)
     Route: 048
     Dates: start: 20200103

REACTIONS (2)
  - Erection increased [Unknown]
  - Penis disorder [Unknown]
